FAERS Safety Report 24466698 (Version 1)
Quarter: 2024Q4

REPORT INFORMATION
  Report Type: Report from Study
  Country: US (occurrence: US)
  Receive Date: 20241018
  Receipt Date: 20241018
  Transmission Date: 20250115
  Serious: No
  Sender: ROCHE
  Company Number: US-ROCHE-3544615

PATIENT

DRUGS (4)
  1. XOLAIR [Suspect]
     Active Substance: OMALIZUMAB
     Indication: Chronic spontaneous urticaria
     Route: 065
  2. LEVOTHYROXINE [Concomitant]
     Active Substance: LEVOTHYROXINE
  3. METOPROLOL [Concomitant]
     Active Substance: METOPROLOL
  4. DOMPERIDONE [Concomitant]
     Active Substance: DOMPERIDONE

REACTIONS (6)
  - Nausea [Unknown]
  - Fatigue [Unknown]
  - Hypothyroidism [Unknown]
  - Sinus tachycardia [Unknown]
  - Impaired gastric emptying [Unknown]
  - Narcolepsy [Unknown]
